FAERS Safety Report 5869064-2 (Version None)
Quarter: 2008Q3

REPORT INFORMATION
  Report Type: 
  Country: None (occurrence: None)
  Receive Date: 20080903
  Receipt Date: 20080829
  Transmission Date: 20090109
  Serious: Yes (Hospitalization)
  Sender: FDA-Public Use
  Company Number: B0534912A

PATIENT
  Age: 34 Year
  Sex: Male

DRUGS (2)
  1. EPIVIR [Suspect]
     Route: 048
     Dates: start: 20070109
  2. STOCRIN [Suspect]
     Route: 048
     Dates: start: 20070109

REACTIONS (6)
  - COUGH [None]
  - DYSPNOEA EXERTIONAL [None]
  - HYPOXIA [None]
  - IMMUNE RECONSTITUTION SYNDROME [None]
  - PNEUMOCYSTIS JIROVECI PNEUMONIA [None]
  - PYREXIA [None]
